FAERS Safety Report 11363648 (Version 1)
Quarter: 2015Q3

REPORT INFORMATION
  Report Type: Spontaneous
  Country: US (occurrence: US)
  Receive Date: 20150811
  Receipt Date: 20150811
  Transmission Date: 20151125
  Serious: No
  Sender: FDA-Public Use
  Company Number: US-009507513-1508USA003279

PATIENT
  Sex: Male

DRUGS (1)
  1. RAGWITEK [Suspect]
     Active Substance: AMBROSIA ARTEMISIIFOLIA POLLEN
     Indication: SEASONAL ALLERGY
     Dosage: 12 AMB/ONCE A DAY
     Route: 060
     Dates: start: 201507, end: 201507

REACTIONS (4)
  - Mouth swelling [Unknown]
  - Oral discomfort [Unknown]
  - Chest discomfort [Unknown]
  - Swollen tongue [Unknown]

NARRATIVE: CASE EVENT DATE: 201507
